FAERS Safety Report 5474837-4 (Version None)
Quarter: 2007Q4

REPORT INFORMATION
  Report Type: 
  Country: None (occurrence: None)
  Receive Date: 20071002
  Receipt Date: 20070926
  Transmission Date: 20080405
  Serious: Yes (Other)
  Sender: FDA-Public Use
  Company Number: CA-ASTRAZENECA-2007UW22041

PATIENT
  Age: 27394 Day
  Sex: Female
  Weight: 59.1 kg

DRUGS (15)
  1. CRESTOR [Suspect]
     Indication: BLOOD CHOLESTEROL
     Route: 048
     Dates: start: 20040319
  2. CALCIUM [Concomitant]
     Route: 048
     Dates: start: 20020101
  3. BLOOD THINNER [Concomitant]
  4. THYROID TAB [Concomitant]
     Route: 048
  5. GABAPENTIN [Concomitant]
     Indication: HYPOAESTHESIA
     Route: 048
  6. SENOKOT [Concomitant]
  7. VITAMIN D [Concomitant]
  8. VITAMIN E [Concomitant]
  9. APO-OXAZEPAM [Concomitant]
  10. ATENOLOL [Concomitant]
     Route: 048
  11. DOMPAROXETINE [Concomitant]
  12. NORVASC [Concomitant]
  13. EZETROL [Concomitant]
  14. ARTHRITIS MEDICATION [Concomitant]
  15. LECITHIN [Concomitant]

REACTIONS (1)
  - LOSS OF CONSCIOUSNESS [None]
